FAERS Safety Report 17286890 (Version 1)
Quarter: 2020Q1

REPORT INFORMATION
  Report Type: Spontaneous
  Country: US (occurrence: US)
  Receive Date: 20200120
  Receipt Date: 20200120
  Transmission Date: 20200409
  Serious: Yes (Hospitalization, Other)
  Sender: FDA-Public Use
  Company Number: US-NOVAST LABORATORIES LTD.-2020NOV000005

PATIENT
  Age: 63 Year
  Sex: Female

DRUGS (1)
  1. PHENTERMINE. [Suspect]
     Active Substance: PHENTERMINE
     Indication: WEIGHT CONTROL
     Dosage: UNK
     Route: 065

REACTIONS (2)
  - Cerebral haemorrhage [Unknown]
  - Hypertension [Recovering/Resolving]
